FAERS Safety Report 4340050-7 (Version None)
Quarter: 2004Q2

REPORT INFORMATION
  Report Type: 
  Country: None (occurrence: None)
  Receive Date: 20040416
  Receipt Date: 20040406
  Transmission Date: 20050107
  Serious: Yes (Hospitalization, Disabling)
  Sender: FDA-Public Use
  Company Number: JP-ROCHE-363684

PATIENT
  Age: 70 Year
  Sex: Male

DRUGS (16)
  1. TORSEMIDE [Suspect]
     Indication: ASCITES
     Route: 048
     Dates: start: 20040305, end: 20040331
  2. SPIRONOLACTONE [Suspect]
     Indication: ASCITES
     Route: 048
     Dates: end: 20040406
  3. SPIRONOLACTONE [Suspect]
     Route: 048
     Dates: start: 20040407
  4. LASIX [Suspect]
     Indication: ASCITES
     Dosage: GIVEN ORALLY.
     Route: 050
  5. LASIX [Suspect]
     Dosage: GIVEN INTRAVENOUSLY
     Route: 050
     Dates: end: 20040328
  6. ALBUMIN (HUMAN) [Suspect]
     Route: 042
     Dates: start: 20040323, end: 20040325
  7. AMINOLEBAN [Concomitant]
     Dates: start: 20040323
  8. LOXOPROFEN SODIUM [Concomitant]
  9. URSO [Concomitant]
  10. TAKEPRON [Concomitant]
     Dates: start: 20040322
  11. DERMOVATE [Concomitant]
  12. ZINC OXIDE [Concomitant]
  13. ALLEGRA [Concomitant]
  14. NU-LOTAN [Concomitant]
     Dates: end: 20040407
  15. MUCOSTA [Concomitant]
  16. RINDERON-VG [Concomitant]

REACTIONS (4)
  - CEREBRAL INFARCTION [None]
  - DEHYDRATION [None]
  - GRIP STRENGTH DECREASED [None]
  - WEIGHT DECREASED [None]
